FAERS Safety Report 15540950 (Version 1)
Quarter: 2018Q4

REPORT INFORMATION
  Report Type: Spontaneous
  Country: BE (occurrence: BE)
  Receive Date: 20181023
  Receipt Date: 20181023
  Transmission Date: 20190205
  Serious: Yes (Other)
  Sender: FDA-Public Use
  Company Number: BE-MYLANLABS-2018M1077162

PATIENT
  Age: 28 Year
  Sex: Female

DRUGS (2)
  1. SUFENTANIL [Suspect]
     Active Substance: SUFENTANIL
     Indication: ANAESTHESIA
     Route: 037
  2. BUPIVACAINE. [Suspect]
     Active Substance: BUPIVACAINE
     Indication: ANAESTHESIA
     Dosage: LOW-DOSE; HYPERBARIC
     Route: 037

REACTIONS (6)
  - Radiculopathy [Unknown]
  - Maternal exposure during delivery [Recovered/Resolved]
  - Anal incontinence [Not Recovered/Not Resolved]
  - Urinary retention [Unknown]
  - Hypoaesthesia [Not Recovered/Not Resolved]
  - Cauda equina syndrome [Recovering/Resolving]
